FAERS Safety Report 9143545 (Version 2)
Quarter: 2013Q1

REPORT INFORMATION
  Report Type: Spontaneous
  Country: IL (occurrence: IL)
  Receive Date: 20130306
  Receipt Date: 20130321
  Transmission Date: 20140127
  Serious: Yes (Other)
  Sender: FDA-Public Use
  Company Number: IL-CELGENEUS-082-22393-13023530

PATIENT
  Age: 67 Year
  Sex: Female

DRUGS (1)
  1. ISTODAX [Suspect]
     Indication: PERIPHERAL T-CELL LYMPHOMA UNSPECIFIED
     Route: 065
     Dates: start: 20130214

REACTIONS (8)
  - Rash [Unknown]
  - Lymphadenopathy [Unknown]
  - Feeling abnormal [Unknown]
  - Asthenia [Unknown]
  - Vomiting [Unknown]
  - Chest pain [Unknown]
  - Platelet count decreased [Unknown]
  - Pain [Unknown]
